FAERS Safety Report 15590387 (Version 16)
Quarter: 2019Q3

REPORT INFORMATION
  Report Type: Report from Study
  Country: CA (occurrence: CA)
  Receive Date: 20181106
  Receipt Date: 20190918
  Transmission Date: 20191004
  Serious: Yes (Hospitalization, Other)
  Sender: FDA-Public Use
  Company Number: CA-SA-2018SA200995

PATIENT
  Age: 31 Year
  Sex: Female

DRUGS (11)
  1. ACYCLOVIR [ACICLOVIR] [Concomitant]
     Active Substance: ACYCLOVIR
     Indication: PREMEDICATION
     Dosage: 200 MG, BID
     Route: 048
     Dates: start: 20180717
  2. BACTRIM DS [Concomitant]
     Active Substance: SULFAMETHOXAZOLE\TRIMETHOPRIM
     Dosage: 1 COPIES/UG, UNK
     Route: 065
  3. ALEMTUZUMAB [Suspect]
     Active Substance: ALEMTUZUMAB
     Indication: RELAPSING-REMITTING MULTIPLE SCLEROSIS
     Dosage: 12 MG, QD
     Route: 041
     Dates: start: 20180717, end: 20180719
  4. ZANTAC [Concomitant]
     Active Substance: RANITIDINE HYDROCHLORIDE
     Indication: PREMEDICATION
     Dosage: 150 MG, UNK
     Route: 048
     Dates: start: 20180717, end: 20180719
  5. VALTREX [Concomitant]
     Active Substance: VALACYCLOVIR HYDROCHLORIDE
     Dosage: UNK UNK, UNK
     Route: 065
  6. REACTINE [CETIRIZINE HYDROCHLORIDE] [Concomitant]
     Active Substance: CETIRIZINE HYDROCHLORIDE
     Indication: PREMEDICATION
     Dosage: 10 MG, UNK
     Route: 048
     Dates: start: 20180717, end: 20180719
  7. PANTOLOC [PANTOPRAZOLE] [Concomitant]
     Active Substance: PANTOPRAZOLE SODIUM
     Indication: PREMEDICATION
     Dosage: 40 MG, UNK
     Route: 048
     Dates: start: 20180717, end: 20180719
  8. ACETAMINOPHEN. [Concomitant]
     Active Substance: ACETAMINOPHEN
     Indication: PREMEDICATION
     Dosage: 1 G, UNK
     Route: 048
     Dates: start: 20180717, end: 20180719
  9. METHYLPREDNISOLONE. [Concomitant]
     Active Substance: METHYLPREDNISOLONE
     Indication: PREMEDICATION
     Dosage: 1 G, UNK
     Route: 042
     Dates: start: 20180717, end: 20180719
  10. ACETAMINOPHEN. [Concomitant]
     Active Substance: ACETAMINOPHEN
     Indication: HEADACHE
  11. GRAVOL [Concomitant]
     Active Substance: DIMENHYDRINATE
     Indication: NAUSEA
     Dosage: 50 MG, UNK
     Route: 048
     Dates: start: 20180717, end: 20180719

REACTIONS (29)
  - Monocyte percentage increased [Recovered/Resolved]
  - Nausea [Recovering/Resolving]
  - Blood urine present [Recovered/Resolved]
  - Band neutrophil percentage increased [Unknown]
  - Nitrite urine present [Recovered/Resolved]
  - Abdominal pain upper [Not Recovered/Not Resolved]
  - Urine analysis abnormal [Not Recovered/Not Resolved]
  - Urine abnormality [Not Recovered/Not Resolved]
  - White blood cells urine positive [Recovered/Resolved]
  - Neutrophil percentage increased [Not Recovered/Not Resolved]
  - Urine bilirubin increased [Recovered/Resolved]
  - Lymphocyte count decreased [Not Recovered/Not Resolved]
  - Staphylococcal infection [Recovered/Resolved]
  - Pregnancy [Unknown]
  - Flatulence [Recovering/Resolving]
  - Musculoskeletal stiffness [Recovering/Resolving]
  - Urine bilirubin decreased [Recovered/Resolved]
  - Urine ketone body present [Recovered/Resolved]
  - Abdominal distension [Recovering/Resolving]
  - Urine leukocyte esterase positive [Recovered/Resolved]
  - Klebsiella test positive [Not Recovered/Not Resolved]
  - White blood cell count decreased [Recovered/Resolved]
  - Increased appetite [Recovering/Resolving]
  - Band neutrophil count increased [Unknown]
  - Bacterial test positive [Recovered/Resolved]
  - Headache [Recovered/Resolved]
  - Cells in urine [Not Recovered/Not Resolved]
  - Lymphocyte percentage decreased [Not Recovered/Not Resolved]
  - Urine oxalate increased [Not Recovered/Not Resolved]

NARRATIVE: CASE EVENT DATE: 20180717
